FAERS Safety Report 10078243 (Version 1)
Quarter: 2014Q2

REPORT INFORMATION
  Report Type: Spontaneous
  Country: BR (occurrence: BR)
  Receive Date: 20140415
  Receipt Date: 20140415
  Transmission Date: 20141212
  Serious: Yes (Hospitalization, Other)
  Sender: FDA-Public Use
  Company Number: BR-ROCHE-1377752

PATIENT
  Sex: Female
  Weight: 14 kg

DRUGS (3)
  1. ACTEMRA [Suspect]
     Indication: JUVENILE IDIOPATHIC ARTHRITIS
     Dosage: SECOND INFUSION WITH DOSE OF 2.7ML OF 80MG/4ML
     Route: 042
  2. INDOMETACIN [Concomitant]
     Route: 065
  3. PREDSIM [Concomitant]
     Route: 065

REACTIONS (12)
  - Loss of consciousness [Recovered/Resolved]
  - Apnoea [Unknown]
  - Chills [Recovered/Resolved]
  - Pallor [Unknown]
  - Skin discolouration [Recovered/Resolved]
  - Respiratory arrest [Recovered/Resolved]
  - Agitation [Unknown]
  - Hypertonia [Unknown]
  - Eye movement disorder [Unknown]
  - Cough [Unknown]
  - Pyrexia [Unknown]
  - Rash erythematous [Unknown]
